FAERS Safety Report 6419200-4 (Version None)
Quarter: 2009Q4

REPORT INFORMATION
  Report Type: 
  Country: None (occurrence: None)
  Receive Date: 20091028
  Receipt Date: 20091028
  Transmission Date: 20100525
  Serious: Yes (Other)
  Sender: FDA-Public Use
  Company Number: None

PATIENT
  Age: 55 Year
  Sex: Female
  Weight: 65.7716 kg

DRUGS (1)
  1. LYRICA [Suspect]
     Dosage: 75MG TWICE DAILY

REACTIONS (7)
  - EYE DISORDER [None]
  - MYALGIA [None]
  - OEDEMA PERIPHERAL [None]
  - SWELLING FACE [None]
  - THINKING ABNORMAL [None]
  - VISION BLURRED [None]
  - WEIGHT INCREASED [None]
